FAERS Safety Report 4770609-4 (Version None)
Quarter: 2005Q3

REPORT INFORMATION
  Report Type: 
  Country: None (occurrence: None)
  Receive Date: 20050915
  Receipt Date: 20050907
  Transmission Date: 20060218
  Serious: Yes (Death)
  Sender: FDA-Public Use
  Company Number: US-JNJFOC-20050901996

PATIENT
  Age: 52 Year
  Sex: Male

DRUGS (3)
  1. TRAMADOL [Suspect]
     Indication: DRUG USE FOR UNKNOWN INDICATION
     Route: 048
  2. OXYCODONE HCL [Suspect]
     Indication: DRUG USE FOR UNKNOWN INDICATION
     Route: 048
  3. BENZODIAZEPINE [Suspect]
     Indication: DRUG USE FOR UNKNOWN INDICATION
     Route: 048

REACTIONS (11)
  - ATRIAL FIBRILLATION [None]
  - BLOOD GLUCOSE INCREASED [None]
  - DRUG SCREEN POSITIVE [None]
  - HEART RATE IRREGULAR [None]
  - HYPOTENSION [None]
  - HYPOXIA [None]
  - INTENTIONAL MISUSE [None]
  - LOSS OF CONSCIOUSNESS [None]
  - OVERDOSE [None]
  - RENAL FAILURE ACUTE [None]
  - TACHYCARDIA [None]
